FAERS Safety Report 4413112-3 (Version None)
Quarter: 2004Q3

REPORT INFORMATION
  Report Type: 
  Country: None (occurrence: None)
  Receive Date: 20040802
  Receipt Date: 20040802
  Transmission Date: 20050211
  Serious: Yes (Disabling)
  Sender: FDA-Public Use
  Company Number: None

PATIENT
  Sex: Female
  Weight: 70.3075 kg

DRUGS (1)
  1. PREDNISONE [Suspect]
     Dosage: 5 MG 12 A DAY ORAL
     Route: 048
     Dates: start: 19850301, end: 19850601

REACTIONS (2)
  - ARTHROPATHY [None]
  - OSTEONECROSIS [None]
